FAERS Safety Report 20315144 (Version 1)
Quarter: 2022Q1

REPORT INFORMATION
  Report Type: Spontaneous
  Country: US (occurrence: None)
  Receive Date: 20220110
  Receipt Date: 20220110
  Transmission Date: 20220423
  Serious: No
  Sender: FDA-Public Use
  Company Number: US-ROCHE-2728018

PATIENT
  Sex: Female
  Weight: 54.480 kg

DRUGS (6)
  1. RITUXAN [Suspect]
     Active Substance: RITUXIMAB
     Indication: Myasthenia gravis crisis
     Route: 065
     Dates: start: 201808
  2. HYDROCORTISONE [Concomitant]
     Active Substance: HYDROCORTISONE
     Dosage: 10 MG PER DAY
  3. IMURAN [Concomitant]
     Active Substance: AZATHIOPRINE
  4. MESTINON [Concomitant]
     Active Substance: PYRIDOSTIGMINE BROMIDE
     Dosage: (THREE 60 MG TABLETS A DAY) AND 180 MG EXTENDED RELEASE AT NIGHT
  5. PREDNISONE [Concomitant]
     Active Substance: PREDNISONE
  6. GABAPENTIN [Concomitant]
     Active Substance: GABAPENTIN

REACTIONS (3)
  - Intentional product use issue [Unknown]
  - Off label use [Unknown]
  - No adverse event [Unknown]
